FAERS Safety Report 5746734-8 (Version None)
Quarter: 2008Q2

REPORT INFORMATION
  Report Type: 
  Country: None (occurrence: None)
  Receive Date: 20080522
  Receipt Date: 20080516
  Transmission Date: 20081010
  Serious: Yes (Hospitalization)
  Sender: FDA-Public Use
  Company Number: GB-AVENTIS-200811593EU

PATIENT
  Age: 31 Year
  Sex: Female

DRUGS (2)
  1. ENOXAPARIN SODIUM [Suspect]
     Indication: ANTICOAGULANT THERAPY
  2. ASPIRIN [Suspect]
     Indication: ANTICOAGULANT THERAPY
     Route: 048

REACTIONS (5)
  - CARDIAC VALVE REPLACEMENT COMPLICATION [None]
  - DRUG EXPOSURE DURING PREGNANCY [None]
  - DYSPNOEA [None]
  - OFF LABEL USE [None]
  - PULMONARY OEDEMA [None]
